FAERS Safety Report 18430125 (Version 1)
Quarter: 2020Q4

REPORT INFORMATION
  Report Type: Spontaneous
  Country: US (occurrence: US)
  Receive Date: 20201027
  Receipt Date: 20201027
  Transmission Date: 20210114
  Serious: No
  Sender: FDA-Public Use
  Company Number: US-SA-2020SA301978

PATIENT

DRUGS (1)
  1. AUBAGIO [Suspect]
     Active Substance: TERIFLUNOMIDE
     Indication: MULTIPLE SCLEROSIS
     Dosage: OR14 MG, QD
     Route: 048
     Dates: start: 20200306

REACTIONS (3)
  - Alopecia [Unknown]
  - Ear congestion [Unknown]
  - Nail ridging [Unknown]

NARRATIVE: CASE EVENT DATE: 2020
